FAERS Safety Report 5116231-1 (Version None)
Quarter: 2006Q3

REPORT INFORMATION
  Report Type: 
  Country: None (occurrence: None)
  Receive Date: 20060927
  Receipt Date: 20060925
  Transmission Date: 20061208
  Serious: Yes (Other)
  Sender: FDA-Public Use
  Company Number: US-GLAXOSMITHKLINE-A0621388B

PATIENT

DRUGS (3)
  1. LAMICTAL [Suspect]
     Indication: EPILEPSY
  2. VITAMIN [Concomitant]
     Dates: start: 20010101
  3. FOLIC ACID [Concomitant]
     Dates: start: 20010101

REACTIONS (2)
  - DRUG EXPOSURE DURING PREGNANCY [None]
  - TRISOMY 13 [None]
